FAERS Safety Report 9269912 (Version 2)
Quarter: 2013Q3

REPORT INFORMATION
  Report Type: Spontaneous
  Country: US (occurrence: US)
  Receive Date: 20130503
  Receipt Date: 20130716
  Transmission Date: 20140515
  Serious: Yes (Other)
  Sender: FDA-Public Use
  Company Number: US-PFIZER INC-2013134952

PATIENT
  Age: 80 Year
  Sex: Male

DRUGS (4)
  1. ZITHROMAX [Suspect]
     Indication: PNEUMONITIS
     Dosage: UNK
     Route: 048
     Dates: start: 20130409, end: 201304
  2. LIPITOR [Concomitant]
     Dosage: UNK
  3. LOVASTATIN [Concomitant]
     Dosage: UNK
  4. WARFARIN [Concomitant]
     Dosage: UNK

REACTIONS (1)
  - Atrial fibrillation [Recovered/Resolved]
